FAERS Safety Report 24066921 (Version 3)
Quarter: 2024Q3

REPORT INFORMATION
  Report Type: Spontaneous
  Country: US (occurrence: US)
  Receive Date: 20240709
  Receipt Date: 20240805
  Transmission Date: 20241016
  Serious: No
  Sender: KARYOPHARM THERAPEUTICS
  Company Number: US-KARYOPHARM-2024KPT001255

PATIENT

DRUGS (14)
  1. XPOVIO [Suspect]
     Active Substance: SELINEXOR
     Indication: Plasma cell myeloma
     Dosage: 60 MG, WEEKLY
     Route: 048
     Dates: start: 20240701, end: 202407
  2. ZYPREXA [Concomitant]
     Active Substance: OLANZAPINE
  3. TRAZODONE [Concomitant]
     Active Substance: TRAZODONE HYDROCHLORIDE
  4. PANTOPRAZOLE [Concomitant]
     Active Substance: PANTOPRAZOLE
  5. LEVOFLOXACIN [Concomitant]
     Active Substance: LEVOFLOXACIN
  6. ATOVAQUONE [Concomitant]
     Active Substance: ATOVAQUONE
  7. ALLOPURINOL [Concomitant]
     Active Substance: ALLOPURINOL
  8. ULTRAM [Concomitant]
     Active Substance: TRAMADOL HYDROCHLORIDE
  9. FLOMAX [Concomitant]
     Active Substance: TAMSULOSIN HYDROCHLORIDE
  10. FAMOTIDINE [Concomitant]
     Active Substance: FAMOTIDINE
  11. DICLOFENAC [Concomitant]
     Active Substance: DICLOFENAC
  12. DEXAMETHASONE [Concomitant]
     Active Substance: DEXAMETHASONE
  13. LUMIGAN [Concomitant]
     Active Substance: BIMATOPROST
  14. ASPIRIN [Concomitant]
     Active Substance: ASPIRIN

REACTIONS (3)
  - Abdominal discomfort [Unknown]
  - Plasma cell myeloma [Unknown]
  - Fatigue [Unknown]

NARRATIVE: CASE EVENT DATE: 20240701
